FAERS Safety Report 16245971 (Version 2)
Quarter: 2019Q2

REPORT INFORMATION
  Report Type: Spontaneous
  Country: JP (occurrence: JP)
  Receive Date: 20190426
  Receipt Date: 20190624
  Transmission Date: 20190711
  Serious: Yes (Life-Threatening, Hospitalization, Other)
  Sender: FDA-Public Use
  Company Number: JP-009507513-1904JPN002922J

PATIENT
  Age: 76 Year
  Sex: Male

DRUGS (1)
  1. KEYTRUDA [Suspect]
     Active Substance: PEMBROLIZUMAB
     Indication: NON-SMALL CELL LUNG CANCER
     Dosage: 200 MILLIGRAM, Q3W
     Route: 041
     Dates: start: 201811, end: 20190420

REACTIONS (4)
  - Hyponatraemia [Not Recovered/Not Resolved]
  - Organising pneumonia [Not Recovered/Not Resolved]
  - Rash [Unknown]
  - Inappropriate antidiuretic hormone secretion [Unknown]

NARRATIVE: CASE EVENT DATE: 2019
